FAERS Safety Report 5460889-4 (Version None)
Quarter: 2007Q3

REPORT INFORMATION
  Report Type: 
  Country: None (occurrence: None)
  Receive Date: 20070827
  Receipt Date: 20070406
  Transmission Date: 20080115
  Serious: Yes (Other)
  Sender: FDA-Public Use
  Company Number: 2007010589

PATIENT
  Age: 66 Year
  Sex: Male
  Weight: 68 kg

DRUGS (6)
  1. VFEND [Suspect]
     Indication: PNEUMONIA FUNGAL
     Dates: start: 20070101
  2. LAMICTAL [Suspect]
     Indication: DEPRESSION
  3. COREG [Concomitant]
  4. AMIODARONE HCL [Concomitant]
  5. LISINOPRIL [Concomitant]
  6. BUMEX [Concomitant]

REACTIONS (3)
  - FATIGUE [None]
  - HALLUCINATION [None]
  - TREMOR [None]
